FAERS Safety Report 22063327 (Version 2)
Quarter: 2023Q1

REPORT INFORMATION
  Report Type: Spontaneous
  Country: US (occurrence: US)
  Receive Date: 20230306
  Receipt Date: 20230306
  Transmission Date: 20230418
  Serious: Yes (Hospitalization)
  Sender: FDA-Public Use
  Company Number: US-ABBVIE-4327806

PATIENT
  Age: 64 Year
  Sex: Female
  Weight: 99.79 kg

DRUGS (6)
  1. HUMIRA [Suspect]
     Active Substance: ADALIMUMAB
     Indication: Psoriatic arthropathy
     Route: 058
  2. LISINOPRIL [Concomitant]
     Active Substance: LISINOPRIL
     Indication: Coronary artery disease
  3. METFORMIN [Concomitant]
     Active Substance: METFORMIN HYDROCHLORIDE
     Indication: Diabetes mellitus
  4. ATENOLOL [Concomitant]
     Active Substance: ATENOLOL
     Indication: Coronary artery disease
  5. VICTOZA [Concomitant]
     Active Substance: LIRAGLUTIDE
     Indication: Diabetes mellitus
  6. HYDROCHLOROTHIAZIDE [Concomitant]
     Active Substance: HYDROCHLOROTHIAZIDE
     Indication: Coronary artery disease

REACTIONS (4)
  - Thyrotoxic crisis [Not Recovered/Not Resolved]
  - Therapeutic product effect decreased [Not Recovered/Not Resolved]
  - Psoriasis [Not Recovered/Not Resolved]
  - Myocardial infarction [Recovered/Resolved]

NARRATIVE: CASE EVENT DATE: 20220501
